FAERS Safety Report 21536494 (Version 1)
Quarter: 2022Q4

REPORT INFORMATION
  Report Type: Spontaneous
  Country: IE (occurrence: IE)
  Receive Date: 20221101
  Receipt Date: 20221101
  Transmission Date: 20230113
  Serious: Yes (Hospitalization, Other)
  Sender: FDA-Public Use
  Company Number: None

PATIENT
  Age: 55 Year
  Sex: Female
  Weight: 63 kg

DRUGS (22)
  1. VEKLURY [Suspect]
     Active Substance: REMDESIVIR
     Indication: COVID-19
     Dosage: 100MG DAILY
     Route: 042
     Dates: start: 20220929, end: 20221001
  2. AMBISOME [Concomitant]
     Active Substance: AMPHOTERICIN B
     Dosage: 60MG MONDAY, WEDNESDAY FRIDAY
     Dates: start: 20220720, end: 20220809
  3. PREDNISOLONE [Concomitant]
     Active Substance: PREDNISOLONE
     Indication: Acute graft versus host disease
     Dosage: 60MG, TAPERING DOSE
     Dates: start: 20220902, end: 20221013
  4. NYSTATIN [Concomitant]
     Active Substance: NYSTATIN
     Dosage: CANDIDA PROPHYLAXIS; 1ML
     Dates: start: 20220928, end: 20221013
  5. PIPERACILLIN SODIUM\TAZOBACTAM SODIUM [Concomitant]
     Active Substance: PIPERACILLIN SODIUM\TAZOBACTAM SODIUM
     Indication: Febrile neutropenia
     Dates: start: 20220714, end: 20220721
  6. VALTREX [Concomitant]
     Active Substance: VALACYCLOVIR HYDROCHLORIDE
     Indication: Antiviral prophylaxis
     Dates: start: 20220827, end: 20221013
  7. METHYLPREDNISOLONE [Concomitant]
     Active Substance: METHYLPREDNISOLONE
     Indication: Acute graft versus host disease
     Dates: start: 20220827, end: 20220831
  8. CHOLECALCIFEROL [Concomitant]
     Active Substance: CHOLECALCIFEROL
     Indication: Vitamin supplementation
     Dosage: 800 UNITS
     Dates: start: 20220710, end: 20221013
  9. PABRINEX HIGH POTENCY [Concomitant]
     Indication: Refeeding syndrome
     Dosage: AS PER MANUFACTURER
     Dates: start: 20220824, end: 20220824
  10. MELPHALAN [Concomitant]
     Active Substance: MELPHALAN
     Dosage: TRANSPLANT CONDITIONING; 140MG/M2
     Dates: start: 20220718, end: 20220718
  11. TACROLIMUS [Concomitant]
     Active Substance: TACROLIMUS
     Indication: Prophylaxis against graft versus host disease
     Dosage: DOSE VARIES AS PER LEVEL
     Dates: start: 20220810, end: 20221013
  12. POSACONAZOLE [Concomitant]
     Active Substance: POSACONAZOLE
     Indication: Antifungal prophylaxis
     Dates: start: 20220827, end: 20221013
  13. FOLIC ACID [Concomitant]
     Active Substance: FOLIC ACID
     Indication: Supportive care
     Dosage: 5MG
     Dates: start: 20220710, end: 20221013
  14. AMLODIPINE [Concomitant]
     Active Substance: AMLODIPINE BESYLATE
     Indication: Hypertension
     Dates: start: 20220710, end: 20221013
  15. MAGNESIUM [Concomitant]
     Active Substance: MAGNESIUM
     Indication: Mineral supplementation
     Dosage: 250MG BID
     Dates: start: 20220828, end: 20221013
  16. FLUDARABINE [Concomitant]
     Active Substance: FLUDARABINE PHOSPHATE
     Dosage: TRANSPLANT CONDITIONING; WEIGHT BASED DOSING
     Dates: start: 20220713, end: 20220720
  17. CYCLOSPORINE [Concomitant]
     Active Substance: CYCLOSPORINE
     Indication: Prophylaxis against graft versus host disease
     Dosage: VARIED AS PER LEVELS
     Dates: start: 20220719, end: 20220810
  18. URSODIOL [Concomitant]
     Active Substance: URSODIOL
     Dosage: VASO - OCCLUSIVE DISEASE/SOS PROPHYLAXIS; 250MG BID
     Dates: start: 20220710, end: 20220816
  19. OLANZAPINE [Concomitant]
     Active Substance: OLANZAPINE
     Indication: Insomnia
     Dates: start: 20220908, end: 20221013
  20. PENTAMIDINE [Concomitant]
     Active Substance: PENTAMIDINE
     Dosage: MONTHLY NEBULISER; 300MG
     Dates: start: 20220829, end: 20220829
  21. ESOMEPRAZOLE [Concomitant]
     Active Substance: ESOMEPRAZOLE
     Indication: Gastritis
     Dates: start: 20220810, end: 20221013
  22. ALLOPURINOL [Concomitant]
     Active Substance: ALLOPURINOL
     Indication: Prophylaxis
     Dates: start: 20220713, end: 20220720

REACTIONS (3)
  - Liver injury [Unknown]
  - Bacterial test positive [Unknown]
  - Pyrexia [Unknown]

NARRATIVE: CASE EVENT DATE: 20221001
